FAERS Safety Report 16132603 (Version 4)
Quarter: 2019Q2

REPORT INFORMATION
  Report Type: Spontaneous
  Country: US (occurrence: US)
  Receive Date: 20190329
  Receipt Date: 20190614
  Transmission Date: 20190711
  Serious: No
  Sender: FDA-Public Use
  Company Number: US-GLAXOSMITHKLINE-US2019054078

PATIENT
  Age: 54 Year
  Sex: Female

DRUGS (1)
  1. BENLYSTA [Suspect]
     Active Substance: BELIMUMAB
     Indication: PRODUCT USED FOR UNKNOWN INDICATION
     Dosage: 200 MG, UNK
     Route: 058

REACTIONS (10)
  - Headache [Not Recovered/Not Resolved]
  - Skin lesion [Recovering/Resolving]
  - Exposure via skin contact [Recovered/Resolved]
  - Administration site pain [Recovering/Resolving]
  - Administration site swelling [Recovering/Resolving]
  - Underdose [Unknown]
  - Migraine [Unknown]
  - Fatigue [Recovering/Resolving]
  - Product complaint [Unknown]
  - Abdominal discomfort [Recovered/Resolved]

NARRATIVE: CASE EVENT DATE: 20190322
